FAERS Safety Report 6959303-9 (Version None)
Quarter: 2010Q3

REPORT INFORMATION
  Report Type: 
  Country: None (occurrence: None)
  Receive Date: 20100831
  Receipt Date: 20100820
  Transmission Date: 20110219
  Serious: Yes (Other)
  Sender: FDA-Public Use
  Company Number: US-PFIZER INC-2010105784

PATIENT

DRUGS (1)
  1. TIKOSYN [Suspect]
     Dosage: 500 UG, 2X/DAY

REACTIONS (1)
  - ELECTROCARDIOGRAM QT PROLONGED [None]
